FAERS Safety Report 10688677 (Version 5)
Quarter: 2015Q1

REPORT INFORMATION
  Report Type: Spontaneous
  Country: CA (occurrence: CA)
  Receive Date: 20150102
  Receipt Date: 20150316
  Transmission Date: 20150720
  Serious: Yes (Other)
  Sender: FDA-Public Use
  Company Number: CA-BIOMARINAP-CA-2014-105119

PATIENT
  Sex: Male
  Weight: 55.1 kg

DRUGS (1)
  1. VIMIZIM [Suspect]
     Active Substance: ELOSULFASE ALFA
     Indication: MUCOPOLYSACCHARIDOSIS IV
     Dosage: 2 MG/KG, QW
     Route: 042
     Dates: start: 201202

REACTIONS (4)
  - Hypoaesthesia [Not Recovered/Not Resolved]
  - Spinal column stenosis [Not Recovered/Not Resolved]
  - Pain [Recovering/Resolving]
  - Spinal cord operation [Unknown]
